FAERS Safety Report 6686908 (Version 2)
Quarter: 2013Q1

REPORT INFORMATION
  Report Type: Spontaneous
  Country: US (occurrence: US)
  Receive Date: 20080630
  Receipt Date: 20130219
  Transmission Date: 20140127
  Serious: No
  Sender: FDA-Public Use
  Company Number: US-BRISTOL-MYERS SQUIBB COMPANY-14150890

PATIENT
  Age: 61 Year
  Sex: Female
  Weight: 64.4 kg

DRUGS (11)
  1. ORENCIA FOR INJ [Suspect]
     Indication: RHEUMATOID ARTHRITIS
     Dosage: LAST DOSE ON 13SEP2012?ALSO ON IV PREVIOUSLY
     Route: 058
  2. PRILOSEC [Concomitant]
  3. INDERAL [Concomitant]
  4. FOLIC ACID [Concomitant]
  5. SYNTHROID [Concomitant]
  6. PREDNISONE [Concomitant]
  7. MULTIVITAMIN [Concomitant]
  8. VITAMIN C [Concomitant]
  9. CALCIUM [Concomitant]
  10. ZYRTEC [Concomitant]
  11. METAMUCIL [Concomitant]

REACTIONS (2)
  - Sinusitis [Unknown]
  - Tooth fracture [Unknown]
